FAERS Safety Report 9422136 (Version 2)
Quarter: 2013Q3

REPORT INFORMATION
  Report Type: Report from Study
  Country: CN (occurrence: CN)
  Receive Date: 20130726
  Receipt Date: 20130729
  Transmission Date: 20140515
  Serious: Yes (Death, Other)
  Sender: FDA-Public Use
  Company Number: CN-ROCHE-1253644

PATIENT
  Age: 72 Year
  Sex: Male

DRUGS (4)
  1. HERCEPTIN [Suspect]
     Indication: GASTRIC CANCER
     Route: 042
     Dates: start: 201304, end: 201306
  2. 5-FLUOROURACIL [Concomitant]
  3. CALCIUM LEVOFOLINATE [Concomitant]
  4. ELOXATIN [Concomitant]

REACTIONS (4)
  - Chest discomfort [Recovering/Resolving]
  - Respiratory rate increased [Recovering/Resolving]
  - Cardiac failure [Fatal]
  - Disease progression [Unknown]
